FAERS Safety Report 4432030-8 (Version None)
Quarter: 2004Q3

REPORT INFORMATION
  Report Type: 
  Country: None (occurrence: None)
  Receive Date: 20040818
  Receipt Date: 20040805
  Transmission Date: 20050211
  Serious: Yes (Other)
  Sender: FDA-Public Use
  Company Number: 2004041004

PATIENT
  Age: 61 Year
  Sex: Female
  Weight: 113.3993 kg

DRUGS (5)
  1. NEURONTIN [Suspect]
     Indication: ROAD TRAFFIC ACCIDENT
     Dosage: 2400 MG (800 MG, 3 IN 1 D), ORAL
     Route: 048
     Dates: start: 20000101
  2. BUPROPION HYDROCHLORIDE [Suspect]
     Indication: NERVOUSNESS
  3. VENLAFAXINE HCL [Concomitant]
  4. LEVOTHYROXINE SODIUM [Concomitant]
  5. BACLOFEN [Concomitant]

REACTIONS (9)
  - ANXIETY [None]
  - DRUG HYPERSENSITIVITY [None]
  - DRUG INEFFECTIVE [None]
  - MUSCLE SPASMS [None]
  - PHARMACEUTICAL PRODUCT COMPLAINT [None]
  - POST PROCEDURAL COMPLICATION [None]
  - TREMOR [None]
  - WEIGHT DECREASED [None]
  - WEIGHT INCREASED [None]
